FAERS Safety Report 9199910 (Version 2)
Quarter: 2013Q2

REPORT INFORMATION
  Report Type: Report from Study
  Country: JP (occurrence: JP)
  Receive Date: 20130329
  Receipt Date: 20130502
  Transmission Date: 20140414
  Serious: Yes (Other)
  Sender: FDA-Public Use
  Company Number: JP-ROCHE-1206753

PATIENT
  Sex: Male
  Weight: 68.06 kg

DRUGS (8)
  1. RANIBIZUMAB [Suspect]
     Indication: AGE-RELATED MACULAR DEGENERATION
     Route: 050
     Dates: start: 20090319
  2. RANIBIZUMAB [Suspect]
     Route: 050
     Dates: start: 20090420
  3. RANIBIZUMAB [Suspect]
     Route: 050
     Dates: start: 20090518
  4. BEVACIZUMAB [Suspect]
     Indication: AGE-RELATED MACULAR DEGENERATION
     Route: 065
  5. VISUDYNE [Concomitant]
     Route: 065
     Dates: start: 200410, end: 200701
  6. CARNACULIN [Concomitant]
  7. METHYCOBAL [Concomitant]
  8. HALCION [Concomitant]

REACTIONS (1)
  - Retinal haemorrhage [Unknown]
